FAERS Safety Report 6879433-X (Version None)
Quarter: 2010Q3

REPORT INFORMATION
  Report Type: 
  Country: None (occurrence: None)
  Receive Date: 20100728
  Receipt Date: 20100720
  Transmission Date: 20110219
  Serious: Yes (Hospitalization)
  Sender: FDA-Public Use
  Company Number: PHHO2010KR09807

PATIENT
  Sex: Male
  Weight: 55.5 kg

DRUGS (2)
  1. AFINITOR [Suspect]
     Indication: RECTAL CANCER
     Dosage: 10 MG, QD
     Route: 048
     Dates: start: 20091204, end: 20100616
  2. GLIMEPIRIDE [Concomitant]
     Indication: DIABETES MELLITUS

REACTIONS (5)
  - CHILLS [None]
  - DYSPNOEA [None]
  - INTERSTITIAL LUNG DISEASE [None]
  - LUNG CONSOLIDATION [None]
  - PRODUCTIVE COUGH [None]
